FAERS Safety Report 21498886 (Version 1)
Quarter: 2022Q4

REPORT INFORMATION
  Report Type: Spontaneous
  Country: FR (occurrence: FR)
  Receive Date: 20221024
  Receipt Date: 20221024
  Transmission Date: 20230113
  Serious: Yes (Other)
  Sender: FDA-Public Use
  Company Number: FR-EXELTIS PHARMACEUTICAL HOLDING, S.L.-2210FR04176

PATIENT
  Age: 35 Year
  Sex: Female
  Weight: 95 kg

DRUGS (1)
  1. DROSPIRENONE [Suspect]
     Active Substance: DROSPIRENONE
     Indication: Product used for unknown indication
     Dosage: 4 MILLIGRAM, QD
     Route: 048

REACTIONS (2)
  - Hepatic cytolysis [Unknown]
  - Transaminases increased [Unknown]
